FAERS Safety Report 7912822-0 (Version None)
Quarter: 2011Q4

REPORT INFORMATION
  Report Type: 
  Country: None (occurrence: None)
  Receive Date: 20111114
  Receipt Date: 20110916
  Transmission Date: 20120403
  Serious: Yes (Hospitalization)
  Sender: FDA-Public Use
  Company Number: US-GLAXOSMITHKLINE-A0945322A

PATIENT
  Age: 48 Year
  Sex: Male

DRUGS (1)
  1. AVANDIA [Suspect]
     Indication: TYPE 2 DIABETES MELLITUS
     Dosage: 8MG PER DAY
     Route: 048
     Dates: start: 20080303, end: 20100209

REACTIONS (7)
  - ARTERIOSCLEROSIS [None]
  - TROPONIN INCREASED [None]
  - DYSPNOEA [None]
  - STENT PLACEMENT [None]
  - MYOCARDIAL INFARCTION [None]
  - CATHETERISATION CARDIAC [None]
  - CHEST PAIN [None]
